FAERS Safety Report 21247412 (Version 1)
Quarter: 2022Q3

REPORT INFORMATION
  Report Type: Spontaneous
  Country: US (occurrence: None)
  Receive Date: 20220823
  Receipt Date: 20220823
  Transmission Date: 20221027
  Serious: Yes (Other)
  Sender: FDA-Public Use
  Company Number: None

PATIENT
  Age: 58 Year
  Sex: Female
  Weight: 113.8 kg

DRUGS (11)
  1. LUMAKRAS [Suspect]
     Active Substance: SOTORASIB
     Indication: Non-small cell lung cancer metastatic
     Dosage: FREQUENCY : DAILY;?
     Route: 048
     Dates: start: 20220722, end: 20220823
  2. METOPROLOL [Concomitant]
     Active Substance: METOPROLOL
  3. LOSARTAN [Concomitant]
     Active Substance: LOSARTAN
  4. NORCO [Concomitant]
     Active Substance: ACETAMINOPHEN\HYDROCODONE BITARTRATE
  5. CYCLOBENZAPRINE [Concomitant]
     Active Substance: CYCLOBENZAPRINE
  6. FUROSEMIDE [Concomitant]
     Active Substance: FUROSEMIDE
  7. CODEINE\GUAIFENESIN [Concomitant]
     Active Substance: CODEINE\GUAIFENESIN
  8. ONDANSETRON [Concomitant]
     Active Substance: ONDANSETRON
  9. ALBUTEROL [Concomitant]
     Active Substance: ALBUTEROL
  10. LEVOTHYROXINE [Concomitant]
     Active Substance: LEVOTHYROXINE
  11. Salmeterol/ fluticasone [Concomitant]

REACTIONS (1)
  - Liver function test increased [None]

NARRATIVE: CASE EVENT DATE: 20220822
